FAERS Safety Report 21213300 (Version 3)
Quarter: 2023Q2

REPORT INFORMATION
  Report Type: Other
  Country: US (occurrence: None)
  Receive Date: 20220815
  Receipt Date: 20230511
  Transmission Date: 20230721
  Serious: Yes (Hospitalization)
  Sender: FDA-Public Use
  Company Number: US-ROCHE-3155232

PATIENT
  Age: 65 Year
  Sex: Male
  Weight: 68.100 kg

DRUGS (17)
  1. OCREVUS [Suspect]
     Active Substance: OCRELIZUMAB
     Indication: Multiple sclerosis
     Dosage: 300 MG IV DAY 0 + DAY 14 THEN 600MG IV Q 6 MONTHS, DATE OF TREATMENT: 23/MAT/2023, 22/FEB/2023, 27/J
     Route: 042
  2. RITUXAN [Suspect]
     Active Substance: RITUXIMAB
     Indication: Multiple sclerosis
     Route: 065
  3. MIRABEGRON [Concomitant]
     Active Substance: MIRABEGRON
  4. ATORVASTATIN [Concomitant]
     Active Substance: ATORVASTATIN
  5. POLYETHYLENE GLYCOL [Concomitant]
     Active Substance: POLYETHYLENE GLYCOL
  6. TADALAFIL [Concomitant]
     Active Substance: TADALAFIL
  7. BRIMONIDINE [Concomitant]
     Active Substance: BRIMONIDINE TARTRATE
  8. KETOCONAZOLE [Concomitant]
     Active Substance: KETOCONAZOLE
  9. BUPROPION [Concomitant]
     Active Substance: BUPROPION
  10. BACLOFEN [Concomitant]
     Active Substance: BACLOFEN
  11. DALFAMPRIDINE [Concomitant]
     Active Substance: DALFAMPRIDINE
  12. ACETAMINOPHEN [Concomitant]
     Active Substance: ACETAMINOPHEN
  13. ASCORBIC ACID [Concomitant]
     Active Substance: ASCORBIC ACID
  14. CHOLECALCIFEROL [Concomitant]
     Active Substance: CHOLECALCIFEROL
  15. FERROUS SULFATE [Concomitant]
     Active Substance: FERROUS SULFATE
  16. MAGNESIUM OXIDE [Concomitant]
     Active Substance: MAGNESIUM OXIDE
  17. ZINC OXIDE [Concomitant]
     Active Substance: ZINC OXIDE

REACTIONS (19)
  - COVID-19 pneumonia [Recovered/Resolved]
  - Off label use [Unknown]
  - Asthenia [Recovering/Resolving]
  - Weight decreased [Recovered/Resolved]
  - Constipation [Recovered/Resolved]
  - Rash [Not Recovered/Not Resolved]
  - Headache [Recovered/Resolved]
  - Fall [Unknown]
  - Tooth disorder [Recovered/Resolved]
  - Head injury [Recovered/Resolved]
  - Gait disturbance [Not Recovered/Not Resolved]
  - Hypoaesthesia [Recovered/Resolved]
  - Paraesthesia [Recovered/Resolved]
  - Pruritus [Not Recovered/Not Resolved]
  - Muscular weakness [Recovered/Resolved]
  - Tooth avulsion [Recovered/Resolved]
  - Tooth avulsion [Not Recovered/Not Resolved]
  - Tooth injury [Not Recovered/Not Resolved]
  - Malocclusion [Recovered/Resolved]

NARRATIVE: CASE EVENT DATE: 20200101
